FAERS Safety Report 8443496-0 (Version None)
Quarter: 2012Q2

REPORT INFORMATION
  Report Type: 
  Country: None (occurrence: None)
  Receive Date: 20120618
  Receipt Date: 20120607
  Transmission Date: 20120825
  Serious: Yes (Other)
  Sender: FDA-Public Use
  Company Number: CA-JNJFOC-20120604990

PATIENT
  Sex: Female
  Weight: 61 kg

DRUGS (2)
  1. REMICADE [Suspect]
     Indication: CROHN'S DISEASE
     Route: 042
     Dates: start: 20120607
  2. REMICADE [Suspect]
     Dosage: 300 MG Q WEEK [SIC]
     Route: 042
     Dates: start: 20101025

REACTIONS (2)
  - PARAESTHESIA [None]
  - INFUSION RELATED REACTION [None]
